FAERS Safety Report 19390347 (Version 1)
Quarter: 2021Q2

REPORT INFORMATION
  Report Type: Spontaneous
  Country: US (occurrence: US)
  Receive Date: 20210608
  Receipt Date: 20210608
  Transmission Date: 20210717
  Serious: No
  Sender: FDA-Public Use
  Company Number: US-ASTRAZENECA-2021A434305

PATIENT
  Sex: Female
  Weight: 73.5 kg

DRUGS (2)
  1. BYDUREON [Concomitant]
     Active Substance: EXENATIDE
  2. BYDUREON BCISE [Suspect]
     Active Substance: EXENATIDE
     Indication: TYPE 2 DIABETES MELLITUS
     Route: 058
     Dates: start: 2017

REACTIONS (6)
  - Device defective [Unknown]
  - Device leakage [Unknown]
  - Injection site pain [Unknown]
  - Intentional product misuse [Unknown]
  - Device issue [Unknown]
  - Wrong technique in device usage process [Unknown]
